FAERS Safety Report 24975012 (Version 1)
Quarter: 2025Q1

REPORT INFORMATION
  Report Type: Spontaneous
  Country: CA (occurrence: CA)
  Receive Date: 20250217
  Receipt Date: 20250217
  Transmission Date: 20250409
  Serious: Yes (Other)
  Sender: ROCHE
  Company Number: CA-002147023-NVSC2025CA023767

PATIENT
  Age: 60 Year
  Sex: Female

DRUGS (8)
  1. OMALIZUMAB [Suspect]
     Active Substance: OMALIZUMAB
     Indication: Chronic spontaneous urticaria
     Route: 050
  2. OMALIZUMAB [Suspect]
     Active Substance: OMALIZUMAB
     Dosage: 300 MG (1 EVERY 4 WEEKS)
     Route: 050
  3. OMALIZUMAB [Suspect]
     Active Substance: OMALIZUMAB
     Route: 050
  4. DEXAMETHASONE [Concomitant]
     Active Substance: DEXAMETHASONE
     Indication: Chronic spontaneous urticaria
     Route: 065
  5. EPIPEN [Concomitant]
     Active Substance: EPINEPHRINE
     Indication: Product used for unknown indication
     Route: 065
  6. MECLOZINE DIHYDROCHLORIDE [Concomitant]
     Active Substance: MECLOZINE DIHYDROCHLORIDE
     Indication: Product used for unknown indication
     Route: 065
  7. MONTELUKAST [Concomitant]
     Active Substance: MONTELUKAST
     Indication: Product used for unknown indication
     Dosage: 1 DOSAGE FORM, QD
     Route: 050
  8. TEGRETOL [Concomitant]
     Active Substance: CARBAMAZEPINE
     Indication: Product used for unknown indication
     Route: 065

REACTIONS (5)
  - Malaise [Recovered/Resolved]
  - Cellulitis [Recovered/Resolved]
  - Anaphylactic reaction [Recovered/Resolved]
  - Injection site urticaria [Recovered/Resolved]
  - Nasopharyngitis [Recovered/Resolved]
